FAERS Safety Report 26205073 (Version 1)
Quarter: 2025Q4

REPORT INFORMATION
  Report Type: Spontaneous
  Country: US (occurrence: US)
  Receive Date: 20251227
  Receipt Date: 20251227
  Transmission Date: 20260118
  Serious: Yes (Hospitalization, Other)
  Sender: INSUD PHARMA
  Company Number: US-INSUD PHARMA-2512US10797

PATIENT

DRUGS (1)
  1. MIDODRINE HYDROCHLORIDE [Suspect]
     Active Substance: MIDODRINE HYDROCHLORIDE
     Indication: Hypotension
     Dosage: UNK
     Route: 065

REACTIONS (7)
  - Hypertensive urgency [Unknown]
  - Pulmonary oedema [Unknown]
  - Hypervolaemia [Unknown]
  - Condition aggravated [Unknown]
  - Dyspnoea [Unknown]
  - Hyperkalaemia [Unknown]
  - Inadequate haemodialysis [Unknown]
